FAERS Safety Report 9107539 (Version 1)
Quarter: 2013Q1

REPORT INFORMATION
  Report Type: Report from Study
  Country: US (occurrence: US)
  Receive Date: 20130221
  Receipt Date: 20130221
  Transmission Date: 20140127
  Serious: Yes (Hospitalization)
  Sender: FDA-Public Use
  Company Number: US-009507513-1302USA008745

PATIENT
  Age: 46 Year
  Sex: Male
  Weight: 86.4 kg

DRUGS (15)
  1. PEGINTERFERON ALFA-2B [Suspect]
     Indication: HEPATITIS C
     Dosage: UNK
     Route: 058
     Dates: start: 20100113
  2. INFLIXIMAB [Suspect]
     Indication: HEPATITIS C
     Dosage: UNK
     Route: 042
     Dates: start: 20100113
  3. RIBAVIRIN [Suspect]
     Indication: HEPATITIS C
     Dosage: UNK
     Route: 048
     Dates: start: 20100113
  4. RIBAVIRIN [Suspect]
     Dosage: UNK
     Route: 048
     Dates: start: 20101016
  5. RIBAVIRIN [Suspect]
     Dosage: UNK
     Route: 048
     Dates: start: 20101018
  6. TRAMADOL HYDROCHLORIDE [Concomitant]
  7. CELEBREX [Concomitant]
  8. FLEXERIL [Concomitant]
  9. NEURONTIN [Concomitant]
  10. LORTAB [Concomitant]
  11. TYLENOL [Concomitant]
  12. BENADRYL [Concomitant]
  13. ZOSYN [Concomitant]
  14. VANCOMYCIN [Concomitant]
  15. CLINDAMYCIN [Concomitant]

REACTIONS (1)
  - Staphylococcal infection [Recovered/Resolved with Sequelae]
